FAERS Safety Report 8503601-4 (Version None)
Quarter: 2012Q3

REPORT INFORMATION
  Report Type: 
  Country: None (occurrence: None)
  Receive Date: 20120711
  Receipt Date: 20120710
  Transmission Date: 20120928
  Serious: Yes (Hospitalization)
  Sender: FDA-Public Use
  Company Number: IT-TEVA-347286ISR

PATIENT
  Sex: Male

DRUGS (1)
  1. CARBOPLATIN [Suspect]

REACTIONS (4)
  - HAEMOLYSIS [None]
  - NEUTROPENIA [None]
  - THROMBOCYTOPENIA [None]
  - LIVER FUNCTION TEST ABNORMAL [None]
